FAERS Safety Report 21417936 (Version 1)
Quarter: 2022Q4

REPORT INFORMATION
  Report Type: Spontaneous
  Country: US (occurrence: US)
  Receive Date: 20221006
  Receipt Date: 20221006
  Transmission Date: 20230112
  Serious: No
  Sender: FDA-Public Use
  Company Number: US-BRISTOL-MYERS SQUIBB COMPANY-2022-116298

PATIENT
  Age: 85 Year
  Sex: Female
  Weight: 44.0 kg

DRUGS (16)
  1. REVLIMID [Suspect]
     Active Substance: LENALIDOMIDE
     Indication: Plasma cell myeloma
     Dosage: ONCE DAILY X21 DAYS THEN 7 DAYS OFF
     Route: 048
     Dates: start: 202205
  2. REVLIMID [Suspect]
     Active Substance: LENALIDOMIDE
     Route: 065
  3. DEXAMETHASONE [Concomitant]
     Active Substance: DEXAMETHASONE
     Dosage: TAKE 10 TABLETS BY MOUTH ONCE A WEEK
     Route: 065
  4. ASPIRIN [Concomitant]
     Active Substance: ASPIRIN
     Dosage: LOW DOSE TABLETS
     Route: 065
  5. COMPAZINE [Concomitant]
     Active Substance: PROCHLORPERAZINE MALEATE
     Route: 065
  6. DOCUSATE SOD [Concomitant]
     Route: 065
  7. FUROSEMIDE [Concomitant]
     Active Substance: FUROSEMIDE
     Route: 065
  8. LOPERAMIDE [Concomitant]
     Active Substance: LOPERAMIDE
     Route: 065
  9. METOPROLOL TARTRATE [Concomitant]
     Active Substance: METOPROLOL TARTRATE
     Route: 065
  10. DIETARY SUPPLEMENT\HERBALS\MILK THISTLE [Concomitant]
     Active Substance: DIETARY SUPPLEMENT\HERBALS\MILK THISTLE
     Route: 065
  11. ONDANSETRON [Concomitant]
     Active Substance: ONDANSETRON
     Route: 065
  12. PANTOPRAZOLE [Concomitant]
     Active Substance: PANTOPRAZOLE
     Route: 065
  13. QUINAPRIL [Concomitant]
     Active Substance: QUINAPRIL
     Route: 065
  14. SENNA [Concomitant]
     Active Substance: SENNA LEAF\SENNOSIDES\SENNOSIDES A AND B
     Route: 065
  15. TRAMADOL [Concomitant]
     Active Substance: TRAMADOL
     Route: 065
  16. ZOMETA [Concomitant]
     Active Substance: ZOLEDRONIC ACID
     Dosage: 4MG/5ML INJ. 5ML
     Route: 065

REACTIONS (1)
  - Neutrophil count decreased [Unknown]

NARRATIVE: CASE EVENT DATE: 20220901
